FAERS Safety Report 10968460 (Version 1)
Quarter: 2015Q1

REPORT INFORMATION
  Report Type: Spontaneous
  Country: FR (occurrence: FR)
  Receive Date: 20150330
  Receipt Date: 20150330
  Transmission Date: 20150721
  Serious: Yes (Death)
  Sender: FDA-Public Use
  Company Number: PHHY2015FR034957

PATIENT

DRUGS (2)
  1. ACZ885 [Suspect]
     Active Substance: CANAKINUMAB
     Indication: VASCULITIS
     Dosage: 150 MG, EVERY 8 WEEKS
     Route: 065
  2. ACZ885 [Suspect]
     Active Substance: CANAKINUMAB
     Dosage: 150 MG, EVERY 4 WEEKS
     Route: 065

REACTIONS (3)
  - Pneumonia staphylococcal [Fatal]
  - Product use issue [Unknown]
  - Therapeutic response decreased [Unknown]
